FAERS Safety Report 9723071 (Version 17)
Quarter: 2015Q3

REPORT INFORMATION
  Report Type: Spontaneous
  Country: CA (occurrence: CA)
  Receive Date: 20131202
  Receipt Date: 20150817
  Transmission Date: 20151125
  Serious: Yes (Hospitalization, Other)
  Sender: FDA-Public Use
  Company Number: CA-ROCHE-1309691

PATIENT
  Age: 42 Year
  Sex: Female

DRUGS (8)
  1. SYMBICORT [Concomitant]
     Active Substance: BUDESONIDE\FORMOTEROL FUMARATE DIHYDRATE
  2. BUDESONIDE. [Suspect]
     Active Substance: BUDESONIDE
     Indication: PRODUCT USED FOR UNKNOWN INDICATION
     Route: 055
  3. XOLAIR [Suspect]
     Active Substance: OMALIZUMAB
     Route: 058
     Dates: start: 20131120
  4. LYRICA [Concomitant]
     Active Substance: PREGABALIN
  5. PREDNISONE. [Concomitant]
     Active Substance: PREDNISONE
     Route: 055
     Dates: start: 2012
  6. HYDROMORPHONE [Concomitant]
     Active Substance: HYDROMORPHONE
  7. XOLAIR [Suspect]
     Active Substance: OMALIZUMAB
     Indication: ASTHMA
     Route: 058
     Dates: start: 20131022
  8. PULMICORT TURBUHALER [Concomitant]
     Active Substance: BUDESONIDE
     Route: 065
     Dates: end: 201409

REACTIONS (15)
  - Fibromyalgia [Not Recovered/Not Resolved]
  - Dizziness [Unknown]
  - Drug hypersensitivity [Recovered/Resolved]
  - Rash [Unknown]
  - Malaise [Not Recovered/Not Resolved]
  - Anxiety [Unknown]
  - Influenza like illness [Unknown]
  - Bronchitis [Unknown]
  - Headache [Unknown]
  - Fall [Unknown]
  - Feeling abnormal [Unknown]
  - Asthma [Unknown]
  - Herpes zoster [Recovering/Resolving]
  - Depression [Recovered/Resolved]
  - Body temperature decreased [Unknown]

NARRATIVE: CASE EVENT DATE: 20131022
